FAERS Safety Report 9540579 (Version 1)
Quarter: 2013Q3

REPORT INFORMATION
  Report Type: Spontaneous
  Country: US (occurrence: US)
  Receive Date: 20130920
  Receipt Date: 20130920
  Transmission Date: 20140515
  Serious: No
  Sender: FDA-Public Use
  Company Number: US-PFIZER INC-2013270153

PATIENT
  Age: 47 Year
  Sex: Female
  Weight: 68.03 kg

DRUGS (3)
  1. ADVIL [Suspect]
     Indication: HEADACHE
     Dosage: 4 TABLETS OF 200 MG, AS NEEDED
  2. ADVIL PM [Suspect]
     Indication: SLEEP DISORDER
     Dosage: 4 TABLETS OF 200 MG, AS NEEDED
     Dates: end: 2013
  3. DILTIAZEM [Concomitant]
     Indication: HYPERTENSION
     Dosage: 360 MG, DAILY

REACTIONS (3)
  - Extra dose administered [Unknown]
  - Intentional overdose [Unknown]
  - Drug ineffective [Unknown]
